FAERS Safety Report 5464293-4 (Version None)
Quarter: 2007Q3

REPORT INFORMATION
  Report Type: 
  Country: None (occurrence: None)
  Receive Date: 20070921
  Receipt Date: 20070912
  Transmission Date: 20080115
  Serious: Yes (Hospitalization)
  Sender: FDA-Public Use
  Company Number: B0487119A

PATIENT
  Age: 86 Year
  Sex: Female

DRUGS (7)
  1. PAROXETINE [Suspect]
     Dosage: 20MG PER DAY
     Route: 048
  2. DURAGESIC-100 [Suspect]
     Indication: PAIN
     Route: 062
     Dates: end: 20070625
  3. DIAMICRON [Suspect]
     Dosage: 90MG PER DAY
     Route: 048
  4. PERINDOPRIL ERBUMINE [Suspect]
     Dosage: 2MG PER DAY
     Route: 048
  5. CORDIPATCH [Suspect]
     Dosage: 10MG PER DAY
     Route: 062
  6. MINI-SINTROM [Suspect]
     Route: 048
     Dates: end: 20070625
  7. OMEPRAZOLE [Suspect]
     Route: 048

REACTIONS (7)
  - ANOREXIA [None]
  - DIABETES MELLITUS INADEQUATE CONTROL [None]
  - GENERAL PHYSICAL HEALTH DETERIORATION [None]
  - INTERNATIONAL NORMALISED RATIO INCREASED [None]
  - OVERDOSE [None]
  - PROTHROMBIN LEVEL DECREASED [None]
  - SOMNOLENCE [None]
